FAERS Safety Report 7307252-9 (Version None)
Quarter: 2011Q1

REPORT INFORMATION
  Report Type: 
  Country: None (occurrence: None)
  Receive Date: 20110223
  Receipt Date: 20110215
  Transmission Date: 20110831
  Serious: No
  Sender: FDA-Public Use
  Company Number: US-PFIZER INC-2010141799

PATIENT
  Sex: Male
  Weight: 95 kg

DRUGS (2)
  1. FISH OIL [Concomitant]
     Dosage: UNK, AS NEEDED
  2. CHANTIX [Suspect]
     Indication: SMOKING CESSATION THERAPY
     Dosage: 1 MG, 2X/DAY
     Route: 048
     Dates: start: 20101001, end: 20101001

REACTIONS (5)
  - NAUSEA [None]
  - MALAISE [None]
  - DRUG DOSE OMISSION [None]
  - DIZZINESS [None]
  - DRUG INEFFECTIVE [None]
